FAERS Safety Report 14973503 (Version 1)
Quarter: 2018Q2

REPORT INFORMATION
  Report Type: Spontaneous
  Country: US (occurrence: US)
  Receive Date: 20180605
  Receipt Date: 20180605
  Transmission Date: 20180711
  Serious: Yes (Hospitalization)
  Sender: FDA-Public Use
  Company Number: US-FERRINGPH-2018FE02683

PATIENT

DRUGS (1)
  1. PROGESTERONE. [Suspect]
     Active Substance: PROGESTERONE
     Indication: PREMATURE LABOUR
     Dosage: UNKNOWN
     Route: 067

REACTIONS (3)
  - Autoimmune dermatitis [Recovering/Resolving]
  - Product use in unapproved indication [Recovered/Resolved]
  - Off label use [Recovered/Resolved]
